FAERS Safety Report 6250048-X (Version None)
Quarter: 2009Q2

REPORT INFORMATION
  Report Type: 
  Country: None (occurrence: None)
  Receive Date: 20090625
  Receipt Date: 20090617
  Transmission Date: 20091009
  Serious: Yes (Hospitalization)
  Sender: FDA-Public Use
  Company Number: GP-09-06-0012

PATIENT
  Age: 22 Year
  Sex: Female

DRUGS (3)
  1. METFORMIN HCL [Suspect]
     Indication: POLYCYSTIC OVARIES
     Dosage: 425 MG (EVERY 8 HOURS)
  2. FLUVASTATIN [Concomitant]
  3. LEVOTHYROXINE [Concomitant]

REACTIONS (1)
  - PANCREATITIS ACUTE [None]
